FAERS Safety Report 21694597 (Version 3)
Quarter: 2023Q2

REPORT INFORMATION
  Report Type: Spontaneous
  Country: US (occurrence: US)
  Receive Date: 20221207
  Receipt Date: 20230608
  Transmission Date: 20230721
  Serious: No
  Sender: FDA-Public Use
  Company Number: US-JNJFOC-20221212844

PATIENT
  Sex: Female

DRUGS (1)
  1. ELMIRON [Suspect]
     Active Substance: PENTOSAN POLYSULFATE SODIUM
     Indication: Cystitis interstitial
     Dosage: VARYING FREQUENCIES OF 1 CAPSULES 3 TIMES A DAY AND 1 CAPSULES 2 TIMES A DAY
     Route: 048
     Dates: start: 2006, end: 202207

REACTIONS (2)
  - Eye injury [Unknown]
  - Off label use [Unknown]
